FAERS Safety Report 8482494-8 (Version None)
Quarter: 2012Q3

REPORT INFORMATION
  Report Type: 
  Country: None (occurrence: None)
  Receive Date: 20120702
  Receipt Date: 20120613
  Transmission Date: 20120928
  Serious: Yes (Life-Threatening, Other)
  Sender: FDA-Public Use
  Company Number: CHPA2012US012994

PATIENT
  Age: 72 Year
  Sex: Female

DRUGS (1)
  1. BENEFIBER W/ WHEAT DEXTRIN [Suspect]
     Indication: FAECES HARD
     Dosage: 2 TSP, TID
     Route: 048
     Dates: start: 20020101

REACTIONS (10)
  - SHOCK [None]
  - BLOOD PRESSURE DECREASED [None]
  - HEART RATE DECREASED [None]
  - PAIN [None]
  - OFF LABEL USE [None]
  - HYPOVITAMINOSIS [None]
  - MALAISE [None]
  - NODULE [None]
  - WHITE BLOOD CELL COUNT INCREASED [None]
  - LYMPHOMA [None]
